FAERS Safety Report 18625789 (Version 1)
Quarter: 2020Q4

REPORT INFORMATION
  Report Type: Spontaneous
  Country: US (occurrence: US)
  Receive Date: 20201216
  Receipt Date: 20201216
  Transmission Date: 20210114
  Serious: No
  Sender: FDA-Public Use
  Company Number: US-ASTRAZENECA-2020SF53804

PATIENT
  Sex: Male

DRUGS (2)
  1. ROSUVASTATIN. [Suspect]
     Active Substance: ROSUVASTATIN
     Indication: BLOOD CHOLESTEROL
     Dosage: UNKNOWN FREQUENCY
     Route: 048
     Dates: start: 202001
  2. BRILINTA [Suspect]
     Active Substance: TICAGRELOR
     Dosage: UNKNOWN FREQUENCY
     Route: 048
     Dates: start: 202001

REACTIONS (3)
  - Back pain [Unknown]
  - Gallbladder disorder [Unknown]
  - Renal disorder [Unknown]
